FAERS Safety Report 9585771 (Version 1)
Quarter: 2013Q4

REPORT INFORMATION
  Report Type: Spontaneous
  Country: US (occurrence: None)
  Receive Date: 20131002
  Receipt Date: 20131002
  Transmission Date: 20140711
  Serious: Yes (Disabling)
  Sender: FDA-Public Use
  Company Number: None

PATIENT
  Age: 48 Year
  Sex: Female
  Weight: 70.31 kg

DRUGS (1)
  1. JANUVIA [Suspect]
     Indication: DIABETES MELLITUS

REACTIONS (6)
  - Lactose intolerance [None]
  - Haematochezia [None]
  - Mucous stools [None]
  - Proctalgia [None]
  - Diarrhoea [None]
  - Asthenia [None]
